FAERS Safety Report 26191164 (Version 1)
Quarter: 2025Q4

REPORT INFORMATION
  Report Type: Report from Study
  Country: CA (occurrence: CA)
  Receive Date: 20251223
  Receipt Date: 20251223
  Transmission Date: 20260118
  Serious: Yes (Other)
  Sender: CELLTRION
  Company Number: CA-CELLTRION INC.-2025CA025421

PATIENT

DRUGS (3)
  1. INFLIXIMAB-DYYB [Suspect]
     Active Substance: INFLIXIMAB-DYYB
     Indication: Crohn^s disease
     Dosage: 120 MG EVERY 7 DAYS
     Route: 058
     Dates: start: 20250708
  2. METHOTREXATE [Concomitant]
     Active Substance: METHOTREXATE
     Dosage: 15MG PO /WEEK
     Route: 048
  3. VITAMIN D NOS [Concomitant]
     Active Substance: CHOLECALCIFEROL\ERGOCALCIFEROL
     Dosage: 2000 INTERNATIONAL UNIT

REACTIONS (9)
  - Aphonia [Unknown]
  - Influenza [Unknown]
  - Seasonal allergy [Unknown]
  - Device malfunction [Unknown]
  - Drug dose omission by device [Unknown]
  - Intentional product use issue [Unknown]
  - Therapy interrupted [Unknown]
  - Insurance issue [Unknown]
  - Inability to afford medication [Unknown]
